FAERS Safety Report 15234033 (Version 1)
Quarter: 2018Q3

REPORT INFORMATION
  Report Type: Spontaneous
  Country: US (occurrence: US)
  Receive Date: 20180802
  Receipt Date: 20180802
  Transmission Date: 20181010
  Serious: No
  Sender: FDA-Public Use
  Company Number: US-ECOLAB-2018-US-006276

PATIENT
  Age: 30 Year
  Sex: Male

DRUGS (1)
  1. SCRUB?STAT [Suspect]
     Active Substance: CHLORHEXIDINE GLUCONATE
     Indication: INFECTION PROPHYLAXIS
     Dosage: USES AT WORK, FREQUENCY OF USE IS UNKNOWN
     Route: 061

REACTIONS (1)
  - Dry skin [Unknown]

NARRATIVE: CASE EVENT DATE: 2015
